FAERS Safety Report 14781036 (Version 2)
Quarter: 2018Q2

REPORT INFORMATION
  Report Type: Spontaneous
  Country: PT (occurrence: PT)
  Receive Date: 20180419
  Receipt Date: 20180426
  Transmission Date: 20180711
  Serious: Yes (Death, Hospitalization, Other)
  Sender: FDA-Public Use
  Company Number: PT-GILEAD-2018-0318550

PATIENT
  Age: 71 Year
  Sex: Female

DRUGS (9)
  1. ZYDELIG [Suspect]
     Active Substance: IDELALISIB
     Indication: CHRONIC LYMPHOCYTIC LEUKAEMIA
     Dosage: 100 MG, BID
     Route: 065
     Dates: start: 20180122, end: 20180129
  2. ZYDELIG [Suspect]
     Active Substance: IDELALISIB
     Dosage: 100 MG, BID
     Route: 065
     Dates: start: 2016, end: 20180116
  3. ESOMEPRAZOL                        /01479301/ [Concomitant]
     Active Substance: ESOMEPRAZOLE
  4. PALEXIA [Concomitant]
     Active Substance: TAPENTADOL HYDROCHLORIDE
  5. FILGRASTIM [Concomitant]
     Active Substance: FILGRASTIM
  6. GABAPENTINE [Concomitant]
     Active Substance: GABAPENTIN
  7. VALPROIC ACID. [Concomitant]
     Active Substance: VALPROIC ACID
  8. ACICLOVIR [Concomitant]
     Active Substance: ACYCLOVIR
  9. BACTRIM [Concomitant]
     Active Substance: SULFAMETHOXAZOLE\TRIMETHOPRIM
     Indication: ANTIFUNGAL PROPHYLAXIS

REACTIONS (5)
  - Neutropenia [Unknown]
  - Respiratory tract infection [Unknown]
  - Ill-defined disorder [Unknown]
  - Infection [Unknown]
  - Pneumonia [Fatal]
